FAERS Safety Report 13014266 (Version 4)
Quarter: 2017Q1

REPORT INFORMATION
  Report Type: Spontaneous
  Country: BR (occurrence: BR)
  Receive Date: 20161209
  Receipt Date: 20170322
  Transmission Date: 20170428
  Serious: Yes (Other)
  Sender: FDA-Public Use
  Company Number: PHHY2016BR167525

PATIENT
  Sex: Female
  Weight: 86 kg

DRUGS (1)
  1. FORASEQ [Suspect]
     Active Substance: BUDESONIDE\FORMOTEROL FUMARATE
     Indication: DYSPNOEA
     Dosage: 1 DF, TID (1 CAPSULES OF TREATMENT 1 AND 2 IN THE MORNING, AFTERNOON AND NIGHT)
     Route: 055

REACTIONS (4)
  - Dengue fever [Unknown]
  - Dyspnoea [Not Recovered/Not Resolved]
  - Malaise [Unknown]
  - Device issue [Unknown]
